FAERS Safety Report 8343167-5 (Version None)
Quarter: 2012Q2

REPORT INFORMATION
  Report Type: 
  Country: None (occurrence: None)
  Receive Date: 20120508
  Receipt Date: 20120424
  Transmission Date: 20120825
  Serious: Yes (Hospitalization, Other)
  Sender: FDA-Public Use
  Company Number: PE-SANOFI-AVENTIS-2012SA024267

PATIENT
  Age: 75 Year
  Sex: Female
  Weight: 97 kg

DRUGS (12)
  1. BLINDED THERAPY [Suspect]
     Route: 065
     Dates: start: 20110516
  2. VALSARTAN [Concomitant]
     Dates: start: 20120303
  3. DOCETAXEL [Suspect]
     Route: 042
     Dates: start: 20110316, end: 20110516
  4. FLUCONAZOLE [Concomitant]
     Dates: start: 20120318, end: 20120320
  5. FUROSEMIDE [Concomitant]
  6. BLINDED THERAPY [Suspect]
     Route: 065
     Dates: end: 20120312
  7. CEPHALEXIN [Concomitant]
     Dates: start: 20120315, end: 20120320
  8. DOCETAXEL [Suspect]
     Route: 042
     Dates: start: 20120312, end: 20120312
  9. PREDNISONE TAB [Concomitant]
     Dates: start: 20110101, end: 20120320
  10. AMLODIPINE [Concomitant]
     Dates: start: 20120303
  11. LOSARTAN POTASSIUM [Concomitant]
     Dates: start: 20120316, end: 20120320
  12. HYDROCHLOROTHIAZIDE [Concomitant]
     Dates: start: 20120316, end: 20120317

REACTIONS (10)
  - PNEUMONIA [None]
  - ORAL CANDIDIASIS [None]
  - PROTEIN URINE PRESENT [None]
  - CONJUNCTIVITIS [None]
  - GENERALISED OEDEMA [None]
  - HYPONATRAEMIA [None]
  - INFECTION [None]
  - CONFUSIONAL STATE [None]
  - ENCEPHALOPATHY [None]
  - DYSPNOEA [None]
